FAERS Safety Report 8803154 (Version 2)
Quarter: 2015Q2

REPORT INFORMATION
  Report Type: Report from Study
  Country: US (occurrence: US)
  Receive Date: 20120924
  Receipt Date: 20150624
  Transmission Date: 20150821
  Serious: Yes (Death)
  Sender: FDA-Public Use
  Company Number: US-ROCHE-1102972

PATIENT
  Sex: Male
  Weight: 80 kg

DRUGS (20)
  1. POTASSIUM CHLORIDE. [Concomitant]
     Active Substance: POTASSIUM CHLORIDE
     Route: 065
  2. DILAUDID [Concomitant]
     Active Substance: HYDROMORPHONE HYDROCHLORIDE
     Route: 065
  3. DURAGESIC [Concomitant]
     Active Substance: FENTANYL
     Route: 062
  4. LASIX [Concomitant]
     Active Substance: FUROSEMIDE
  5. HYDROCORTISONE. [Concomitant]
     Active Substance: HYDROCORTISONE
  6. AMBIEN [Concomitant]
     Active Substance: ZOLPIDEM TARTRATE
     Route: 065
  7. XELODA [Suspect]
     Active Substance: CAPECITABINE
     Indication: HEPATIC CANCER
     Route: 065
  8. MEGACE [Concomitant]
     Active Substance: MEGESTROL ACETATE
  9. LIDOCAINE. [Concomitant]
     Active Substance: LIDOCAINE
  10. AVASTIN [Suspect]
     Active Substance: BEVACIZUMAB
     Indication: HEPATIC CANCER
     Route: 042
     Dates: start: 20061212
  11. CISPLATIN. [Concomitant]
     Active Substance: CISPLATIN
     Route: 065
  12. MANNITOL. [Concomitant]
     Active Substance: MANNITOL
     Route: 042
  13. AVASTIN [Suspect]
     Active Substance: BEVACIZUMAB
     Route: 042
     Dates: start: 20070104
  14. LORTAB (UNITED STATES) [Concomitant]
  15. TYLENOL [Concomitant]
     Active Substance: ACETAMINOPHEN
  16. BENADRYL [Concomitant]
     Active Substance: DIPHENHYDRAMINE HYDROCHLORIDE
     Route: 065
  17. ALOXI [Concomitant]
     Active Substance: PALONOSETRON HYDROCHLORIDE
     Route: 042
  18. BETAMETHASONE [Concomitant]
     Active Substance: BETAMETHASONE
     Route: 061
  19. ATIVAN [Concomitant]
     Active Substance: LORAZEPAM
  20. MAGNESIUM SULPHATE [Concomitant]
     Active Substance: MAGNESIUM SULFATE
     Route: 065

REACTIONS (15)
  - Oedema [Unknown]
  - Off label use [Unknown]
  - Asthenia [Unknown]
  - Skin turgor decreased [Unknown]
  - Death [Fatal]
  - Perianal erythema [Unknown]
  - Rectal haemorrhage [Unknown]
  - Hypotension [Unknown]
  - Insomnia [Unknown]
  - Weight decreased [Unknown]
  - Proctalgia [Unknown]
  - Lip ulceration [Unknown]
  - Dizziness [Unknown]
  - Mucosal inflammation [Recovered/Resolved]
  - Cheilitis [Unknown]
